FAERS Safety Report 18669094 (Version 6)
Quarter: 2021Q3

REPORT INFORMATION
  Report Type: Report from Study
  Country: HU (occurrence: HU)
  Receive Date: 20201228
  Receipt Date: 20210702
  Transmission Date: 20211014
  Serious: Yes (Other)
  Sender: FDA-Public Use
  Company Number: NVSC2020HU328835

PATIENT
  Age: 62 Year

DRUGS (5)
  1. KISQALI [Suspect]
     Active Substance: RIBOCICLIB
     Dosage: UNK
     Route: 065
     Dates: start: 20210120
  2. KISQALI [Suspect]
     Active Substance: RIBOCICLIB
     Indication: NEOPLASM MALIGNANT
     Dosage: UNK
     Route: 065
     Dates: end: 20201207
  3. KISQALI [Suspect]
     Active Substance: RIBOCICLIB
     Dosage: 600 MG (1X)
     Route: 065
     Dates: start: 20210318
  4. KISQALI [Suspect]
     Active Substance: RIBOCICLIB
     Dosage: 600 MG, QD
     Route: 065
     Dates: start: 20210610
  5. LETROZOLE. [Suspect]
     Active Substance: LETROZOLE
     Indication: PRODUCT USED FOR UNKNOWN INDICATION
     Dosage: UNK
     Route: 065

REACTIONS (14)
  - Neoplasm malignant [Unknown]
  - Oropharyngeal pain [Recovering/Resolving]
  - Fatigue [Recovering/Resolving]
  - Dry skin [Unknown]
  - Erythema [Recovered/Resolved]
  - Bone pain [Recovered/Resolved]
  - Anosmia [Recovering/Resolving]
  - Cutis laxa [Unknown]
  - Skin exfoliation [Unknown]
  - Pyrexia [Recovered/Resolved]
  - Skin plaque [Recovered/Resolved]
  - COVID-19 [Not Recovered/Not Resolved]
  - Alopecia [Unknown]
  - Ageusia [Recovering/Resolving]

NARRATIVE: CASE EVENT DATE: 20201204
